FAERS Safety Report 9279181 (Version 1)
Quarter: 2013Q2

REPORT INFORMATION
  Report Type: Spontaneous
  Country: US (occurrence: US)
  Receive Date: 20130508
  Receipt Date: 20130508
  Transmission Date: 20140414
  Serious: No
  Sender: FDA-Public Use
  Company Number: US-ASTRAZENECA-2013SE25673

PATIENT
  Age: 68 Year
  Sex: Female
  Weight: 56.2 kg

DRUGS (3)
  1. SYMBICORT [Suspect]
     Indication: PERTUSSIS
     Dosage: 80/4.5, 2 PUFFS, BID
     Route: 055
     Dates: start: 20130412, end: 20130414
  2. SYMBICORT [Suspect]
     Indication: PERTUSSIS
     Dosage: 80/4.5, 2 PUFFS, BID
     Route: 055
     Dates: start: 20130412, end: 20130414
  3. SYNTHROID [Concomitant]
     Route: 048
     Dates: start: 1989

REACTIONS (3)
  - Lip injury [Unknown]
  - Intentional drug misuse [Unknown]
  - Off label use [Unknown]
